FAERS Safety Report 5811478-0 (Version None)
Quarter: 2008Q3

REPORT INFORMATION
  Report Type: 
  Country: None (occurrence: None)
  Receive Date: 20080711
  Receipt Date: 20080711
  Transmission Date: 20090109
  Serious: Yes (Other)
  Sender: FDA-Public Use
  Company Number: None

PATIENT
  Sex: Female
  Weight: 61.6892 kg

DRUGS (1)
  1. PROPANOLOL ER 120 MG [Suspect]
     Indication: HYPERTENSION
     Dosage: 120 MG OD PO
     Route: 048
     Dates: start: 20070615

REACTIONS (4)
  - MEDICATION ERROR [None]
  - PALPITATIONS [None]
  - PHARMACEUTICAL PRODUCT COMPLAINT [None]
  - TREMOR [None]
